FAERS Safety Report 8064417-9 (Version None)
Quarter: 2012Q1

REPORT INFORMATION
  Report Type: 
  Country: None (occurrence: None)
  Receive Date: 20120123
  Receipt Date: 20120113
  Transmission Date: 20120608
  Serious: Yes (Other)
  Sender: FDA-Public Use
  Company Number: CHPA2012US001352

PATIENT
  Age: 72 Year
  Sex: Female

DRUGS (3)
  1. GAS-X PREVENTION [Suspect]
     Indication: FLATULENCE
     Dosage: 1 DF, PRN
     Route: 048
  2. ZONISAMIDE [Concomitant]
     Indication: CONVULSION
     Dosage: UNK, BEDTIME
     Route: 048
  3. DIVALPROEX SODIUM [Concomitant]
     Indication: CONVULSION
     Dosage: UNK, DAYTIME
     Route: 048

REACTIONS (3)
  - CONCOMITANT DISEASE AGGRAVATED [None]
  - CONVULSION [None]
  - OFF LABEL USE [None]
